FAERS Safety Report 6778928-7 (Version None)
Quarter: 2010Q2

REPORT INFORMATION
  Report Type: 
  Country: None (occurrence: None)
  Receive Date: 20100618
  Receipt Date: 20100614
  Transmission Date: 20101027
  Serious: Yes (Hospitalization)
  Sender: FDA-Public Use
  Company Number: DE-ELI_LILLY_AND_COMPANY-DE201006003355

PATIENT
  Age: 54 Year
  Sex: Male
  Weight: 94 kg

DRUGS (5)
  1. PRASUGREL HYDROCHLORIDE [Suspect]
     Indication: ACUTE CORONARY SYNDROME
     Dosage: UNK, DAILY (1/D)
     Route: 048
     Dates: start: 20100501
  2. ASPIRIN [Concomitant]
     Dosage: 100 MG, DAILY (1/D)
     Dates: start: 20100212
  3. RAMIPRIL [Concomitant]
     Dates: start: 20100501
  4. PRAVASTATIN [Concomitant]
     Dates: start: 20100501
  5. PANTOPRAZOL [Concomitant]
     Dates: start: 20100501

REACTIONS (1)
  - CHEST PAIN [None]
